FAERS Safety Report 6744288-0 (Version None)
Quarter: 2010Q2

REPORT INFORMATION
  Report Type: 
  Country: None (occurrence: None)
  Receive Date: 20100527
  Receipt Date: 20100521
  Transmission Date: 20101027
  Serious: Yes (Other)
  Sender: FDA-Public Use
  Company Number: US-MERCK-1005USA03403

PATIENT
  Age: 42 Month
  Sex: Male

DRUGS (2)
  1. SINGULAIR [Suspect]
     Indication: ASTHMA PROPHYLAXIS
     Route: 048
     Dates: start: 20071001, end: 20071201
  2. SINGULAIR [Suspect]
     Indication: HYPERSENSITIVITY
     Route: 048
     Dates: start: 20071001, end: 20071201

REACTIONS (8)
  - AGGRESSION [None]
  - ASTHENIA [None]
  - EMOTIONAL DISTRESS [None]
  - FEELING ABNORMAL [None]
  - INSOMNIA [None]
  - IRRITABILITY [None]
  - MOOD SWINGS [None]
  - PHYSICAL ASSAULT [None]
